FAERS Safety Report 7084712-X (Version None)
Quarter: 2010Q4

REPORT INFORMATION
  Report Type: 
  Country: None (occurrence: None)
  Receive Date: 20101104
  Receipt Date: 20101022
  Transmission Date: 20110411
  Serious: Yes (Hospitalization)
  Sender: FDA-Public Use
  Company Number: JP-AMGEN-JPNCT2010001922

PATIENT

DRUGS (4)
  1. DENOSUMAB [Suspect]
     Indication: OSTEOPOROSIS
     Dosage: DENOSUMAB 60MG OR PLACEBO
     Route: 058
     Dates: start: 20090423
  2. ACECOL [Suspect]
     Indication: HYPERTENSION
     Route: 048
     Dates: start: 20040101
  3. CALCICHEW D3 [Suspect]
     Indication: OSTEOPOROSIS
     Route: 048
     Dates: start: 20090326
  4. ATELEC [Suspect]
     Indication: HYPERTENSION
     Route: 048
     Dates: start: 20040101

REACTIONS (3)
  - DIZZINESS [None]
  - HEADACHE [None]
  - NAUSEA [None]
